FAERS Safety Report 5140746-3 (Version None)
Quarter: 2006Q4

REPORT INFORMATION
  Report Type: 
  Country: None (occurrence: None)
  Receive Date: 20061025
  Receipt Date: 20061010
  Transmission Date: 20070319
  Serious: Yes (Hospitalization, Other)
  Sender: FDA-Public Use
  Company Number: BR-2005-016058

PATIENT
  Age: 47 Year
  Sex: Male
  Weight: 52 kg

DRUGS (7)
  1. BETAFERON 250 ?G, 500 ?G AND COPAXONE (BETAFERON (SH Y 579E)) INJECTIO [Suspect]
     Indication: RELAPSING-REMITTING MULTIPLE SCLEROSIS
     Dosage: SEE IMAGE
     Route: 058
     Dates: start: 20050621, end: 20050731
  2. BETAFERON 250 ?G, 500 ?G AND COPAXONE (BETAFERON (SH Y 579E)) INJECTIO [Suspect]
     Indication: RELAPSING-REMITTING MULTIPLE SCLEROSIS
     Dosage: SEE IMAGE
     Route: 058
     Dates: start: 20050801, end: 20050822
  3. IBUPROFEN [Concomitant]
  4. CYCLOBENZAPRINE HCL [Concomitant]
  5. BACLOFEN [Concomitant]
  6. CARBAMAZEPINE [Concomitant]
  7. FOLIC ACID [Concomitant]

REACTIONS (34)
  - AREFLEXIA [None]
  - ASTHENIA [None]
  - AZOTAEMIA [None]
  - BLADDER DISTENSION [None]
  - BLOOD CREATININE INCREASED [None]
  - BLOOD UREA INCREASED [None]
  - DECUBITUS ULCER [None]
  - DISEASE PROGRESSION [None]
  - DYSURIA [None]
  - ENTEROCOCCAL INFECTION [None]
  - HAEMOGLOBIN URINE PRESENT [None]
  - HEPATIC ENZYME INCREASED [None]
  - HYPOTENSION [None]
  - MALAISE [None]
  - MULTIPLE SCLEROSIS [None]
  - MULTIPLE SCLEROSIS RELAPSE [None]
  - MYELITIS TRANSVERSE [None]
  - NEUROGENIC BLADDER [None]
  - PARALYSIS FLACCID [None]
  - PARAPLEGIA [None]
  - PROTEIN URINE PRESENT [None]
  - PSEUDOMONAS INFECTION [None]
  - PYREXIA [None]
  - SEPSIS [None]
  - SPINAL CORD DISORDER [None]
  - SPINAL SHOCK [None]
  - TACHYCARDIA [None]
  - URINARY TRACT INFECTION [None]
  - URINARY TRACT OBSTRUCTION [None]
  - URINE OUTPUT DECREASED [None]
  - UROSEPSIS [None]
  - WHITE BLOOD CELL COUNT INCREASED [None]
  - WHITE BLOOD CELLS URINE POSITIVE [None]
  - WOUND [None]
